FAERS Safety Report 7233770-8 (Version None)
Quarter: 2011Q1

REPORT INFORMATION
  Report Type: 
  Country: None (occurrence: None)
  Receive Date: 20110119
  Receipt Date: 20110107
  Transmission Date: 20110831
  Serious: No
  Sender: FDA-Public Use
  Company Number: US-B.I. PHARMACEUTICALS,INC./RIDGEFIELD-2011-BP-00789BP

PATIENT
  Age: 82 Year
  Sex: Male

DRUGS (9)
  1. CELEBREX [Concomitant]
     Indication: ARTHRITIS
  2. LISINOPRIL [Concomitant]
     Indication: HYPERTENSION
  3. CRESTOR [Concomitant]
     Indication: BLOOD CHOLESTEROL INCREASED
  4. PRADAXA [Suspect]
     Indication: ATRIAL FIBRILLATION
     Dosage: 300 MG
     Route: 048
     Dates: start: 20110105
  5. DOXAZOSIN MESYLATE [Concomitant]
     Indication: ATRIAL FIBRILLATION
  6. ZESTRIL [Concomitant]
     Indication: HYPERTENSION
  7. VIT [Concomitant]
     Indication: PROPHYLAXIS
  8. FISH OIL [Concomitant]
     Indication: PROPHYLAXIS
  9. SOTALOL [Concomitant]
     Indication: HYPERTENSION

REACTIONS (1)
  - POLLAKIURIA [None]
